FAERS Safety Report 9292435 (Version 2)
Quarter: 2014Q2

REPORT INFORMATION
  Report Type: Spontaneous
  Country: US (occurrence: US)
  Receive Date: 20130516
  Receipt Date: 20140501
  Transmission Date: 20141212
  Serious: No
  Sender: FDA-Public Use
  Company Number: US-BAYER-2013-060880

PATIENT
  Age: 47 Year
  Sex: Female

DRUGS (2)
  1. MIRENA [Suspect]
     Indication: MENSTRUAL CYCLE MANAGEMENT
     Dosage: 20 MCG/24HR, CONT
     Route: 015
     Dates: start: 20130220, end: 20130508
  2. MIRENA [Suspect]
     Indication: CONTRACEPTION

REACTIONS (6)
  - Procedural pain [None]
  - Muscle spasms [None]
  - Pelvic pain [None]
  - Discomfort [None]
  - Device intolerance [None]
  - Mobility decreased [None]
